FAERS Safety Report 6634262-7 (Version None)
Quarter: 2010Q1

REPORT INFORMATION
  Report Type: 
  Country: None (occurrence: None)
  Receive Date: 20100315
  Receipt Date: 20100304
  Transmission Date: 20100710
  Serious: Yes (Other)
  Sender: FDA-Public Use
  Company Number: BR-ASTRAZENECA-2010SE09869

PATIENT
  Age: 61 Year
  Sex: Female
  Weight: 68 kg

DRUGS (4)
  1. ATACAND [Suspect]
     Indication: HYPERTENSION
     Route: 048
     Dates: start: 19950101, end: 20080101
  2. ATACAND [Suspect]
     Route: 048
     Dates: start: 20080101, end: 20100201
  3. ATACAND [Suspect]
     Route: 048
     Dates: start: 20100201
  4. ISOFLAVONE [Concomitant]
     Indication: HORMONE REPLACEMENT THERAPY
     Dosage: DAILY
     Route: 048
     Dates: start: 19580101

REACTIONS (4)
  - BLOOD PRESSURE ABNORMAL [None]
  - CHOLELITHIASIS [None]
  - DIABETES MELLITUS [None]
  - MITRAL VALVE PROLAPSE [None]
